FAERS Safety Report 10936278 (Version 1)
Quarter: 2015Q1

REPORT INFORMATION
  Report Type: Spontaneous
  Country: US (occurrence: None)
  Receive Date: 20150320
  Receipt Date: 20150320
  Transmission Date: 20150721
  Serious: Yes (Disabling)
  Sender: FDA-Public Use
  Company Number: None

PATIENT
  Age: 42 Year
  Sex: Female
  Weight: 63.5 kg

DRUGS (9)
  1. BIOTIN [Concomitant]
     Active Substance: BIOTIN
  2. SYNTHROID [Concomitant]
     Active Substance: LEVOTHYROXINE SODIUM
  3. MULTI-VITAMIN [Concomitant]
     Active Substance: .ALPHA.-TOCOPHEROL ACETATE, DL-\ASCORBIC ACID\CYANOCOBALAMIN\FLUORIDE ION\FOLIC ACID\NIACIN\PYRIDOXINE\RIBOFLAVIN\THIAMINE\VITAMIN A\VITAMIN D
  4. PROGESTERONE. [Concomitant]
     Active Substance: PROGESTERONE
  5. LEVAQUIN [Suspect]
     Active Substance: LEVOFLOXACIN
     Indication: BRONCHITIS
     Dosage: 7 PILLS ONCE DAILY TAKEN BY MOUTH
     Route: 048
  6. ESTOGEN [Concomitant]
  7. VITAMIN D [Concomitant]
     Active Substance: CHOLECALCIFEROL
  8. CYTOMEL [Concomitant]
     Active Substance: LIOTHYRONINE SODIUM
  9. DHEA [Concomitant]
     Active Substance: DEHYDROEPIANDROSTERONE-3-SULFATE SODIUM

REACTIONS (14)
  - Myalgia [None]
  - Visual impairment [None]
  - Tendonitis [None]
  - Pain [None]
  - Neuropathy peripheral [None]
  - Night sweats [None]
  - Premature menopause [None]
  - Neuralgia [None]
  - Hormone level abnormal [None]
  - Pain in extremity [None]
  - Nervous system disorder [None]
  - Abdominal pain upper [None]
  - Eye pain [None]
  - Quality of life decreased [None]

NARRATIVE: CASE EVENT DATE: 20101205
